FAERS Safety Report 9411470 (Version 1)
Quarter: 2013Q3

REPORT INFORMATION
  Report Type: Report from Study
  Country: US (occurrence: US)
  Receive Date: 20130722
  Receipt Date: 20130722
  Transmission Date: 20140515
  Serious: Yes (Hospitalization)
  Sender: FDA-Public Use
  Company Number: US-BRISTOL-MYERS SQUIBB COMPANY-18844811

PATIENT
  Age: 66 Year
  Sex: Male
  Weight: 80.27 kg

DRUGS (4)
  1. CETUXIMAB [Suspect]
     Indication: SQUAMOUS CELL CARCINOMA OF HEAD AND NECK
     Dosage: 12,19,26-MAR-13, 02,09-APR-13- 250 MG/M2 WEEKLY DOSES WERE GIVEN VIA INFUSION
     Route: 065
     Dates: start: 20130306
  2. CISPLATIN [Suspect]
     Indication: SQUAMOUS CELL CARCINOMA OF HEAD AND NECK
     Dosage: LAST DOSE 26-MAR-2013?07MAY13:30MG/ME2,WEEKLY
     Route: 065
     Dates: start: 20130306
  3. BEVACIZUMAB [Suspect]
     Indication: SQUAMOUS CELL CARCINOMA OF HEAD AND NECK
     Dosage: 26-MAR-2013-28MAY2013
     Route: 065
     Dates: start: 20130306, end: 20130528
  4. DOCETAXEL [Suspect]
     Indication: SQUAMOUS CELL CARCINOMA OF HEAD AND NECK
     Dosage: LAST DOSE 26-MAR-2013
     Route: 065
     Dates: start: 20130306

REACTIONS (3)
  - Pneumonia [Unknown]
  - Appendicitis [Not Recovered/Not Resolved]
  - Atrial fibrillation [Unknown]
